FAERS Safety Report 9097081 (Version 2)
Quarter: 2014Q2

REPORT INFORMATION
  Report Type: Spontaneous
  Country: DK (occurrence: None)
  Receive Date: 20130123
  Receipt Date: 20140508
  Transmission Date: 20141212
  Serious: Yes (Hospitalization, Other)
  Sender: FDA-Public Use
  Company Number: 2013-00654

PATIENT
  Age: 75 Year
  Sex: Female

DRUGS (10)
  1. CYCLOPHOSPHAMIDE (CYCLOPHOSPHAMIDE) [Suspect]
     Indication: BREAST CANCER
     Route: 042
     Dates: start: 20121114, end: 20121205
  2. PEGFILGRASTIM [Suspect]
     Indication: PRODUCT USED FOR UNKNOWN INDICATION
  3. EPIRUBICIN HYDROCHLORIDE [Suspect]
     Indication: BREAST CANCER
     Route: 042
     Dates: start: 20121205
  4. FLUOROURACIL (FLUOROURACIL) [Suspect]
     Indication: BREAST CANCER
     Route: 042
     Dates: start: 20121205
  5. PREDNISOLONE [Concomitant]
  6. ONDANSETRON (ONDANSETRON) [Concomitant]
  7. EMEND /01627301/ (APREPITANT) [Concomitant]
  8. MULTIVITAMIN /00097801/ [Concomitant]
  9. IRON (IRON) [Concomitant]
  10. EMPERAL [Concomitant]

REACTIONS (6)
  - Febrile neutropenia [None]
  - Fatigue [None]
  - White blood cell count decreased [None]
  - White blood cell count increased [None]
  - Neutrophil count increased [None]
  - Platelet count decreased [None]
